FAERS Safety Report 8889140 (Version 1)
Quarter: 2012Q4

REPORT INFORMATION
  Report Type: 
  Country: CA (occurrence: CA)
  Receive Date: 20121106
  Receipt Date: 20121106
  Transmission Date: 20130627
  Serious: Yes (Congenital Anomaly)
  Sender: FDA-Public Use
  Company Number: CA-B.I. PHARMACEUTICALS,INC./RIDGEFIELD-2012-CN-02215CN

PATIENT
  Age: 0 Year
  Sex: Female

DRUGS (5)
  1. CATAPRES [Suspect]
     Indication: MATERNAL EXPOSURE DURING PREGNANCY
     Route: 064
  2. LYRICA [Concomitant]
     Indication: MATERNAL EXPOSURE DURING PREGNANCY
     Route: 064
  3. ZYTRAM XL [Concomitant]
     Indication: MATERNAL EXPOSURE DURING PREGNANCY
     Route: 064
  4. SYNTHROID [Concomitant]
     Indication: MATERNAL EXPOSURE DURING PREGNANCY
     Route: 064
  5. CESAMET [Concomitant]
     Indication: MATERNAL EXPOSURE DURING PREGNANCY
     Route: 064

REACTIONS (3)
  - Neural tube defect [Unknown]
  - Spina bifida [Unknown]
  - Lipoma [Unknown]
